FAERS Safety Report 5449740-6 (Version None)
Quarter: 2007Q3

REPORT INFORMATION
  Report Type: 
  Country: None (occurrence: None)
  Receive Date: 20070910
  Receipt Date: 20070828
  Transmission Date: 20080115
  Serious: Yes (Hospitalization)
  Sender: FDA-Public Use
  Company Number: 2005P1000618

PATIENT
  Age: 75 Year
  Sex: Male
  Weight: 70 kg

DRUGS (12)
  1. RETEPLASE (RETEPLASE) [Suspect]
     Indication: ACUTE MYOCARDIAL INFARCTION
     Dosage: 5  IU; X1; IV
     Route: 042
     Dates: start: 20051108, end: 20051108
  2. ABCIXIMAB (ABCIXIMAB) [Suspect]
     Indication: ACUTE MYOCARDIAL INFARCTION
     Dosage: 9 MG; X1; IV, 50 MG; X1; IV
     Route: 042
     Dates: start: 20051108, end: 20051108
  3. ABCIXIMAB (ABCIXIMAB) [Suspect]
     Indication: ACUTE MYOCARDIAL INFARCTION
     Dosage: 9 MG; X1; IV, 50 MG; X1; IV
     Route: 042
     Dates: start: 20051108, end: 20051108
  4. PLACEBO (PLACEBO) [Suspect]
     Indication: ACUTE MYOCARDIAL INFARCTION
     Dosage: 0.25 MG/KG; X1; IV
     Route: 042
     Dates: start: 20051108, end: 20051108
  5. ASPIRIN [Concomitant]
  6. CLOPIDOGREL [Concomitant]
  7. ATORVASTATIN CALCIUM [Concomitant]
  8. BISOPROLOL [Concomitant]
  9. RAMIPRIL [Concomitant]
  10. LANSOPRAZOLE [Concomitant]
  11. FUROSEMIDE [Concomitant]
  12. SPIRONOLACTONE [Concomitant]

REACTIONS (3)
  - ANGINA UNSTABLE [None]
  - CORONARY ARTERY STENOSIS [None]
  - LEFT VENTRICULAR FAILURE [None]
